FAERS Safety Report 17815395 (Version 1)
Quarter: 2020Q2

REPORT INFORMATION
  Report Type: Spontaneous
  Country: GB (occurrence: GB)
  Receive Date: 20200522
  Receipt Date: 20200522
  Transmission Date: 20200714
  Serious: Yes (Other)
  Sender: FDA-Public Use
  Company Number: NVSC2020GB139939

PATIENT
  Age: 4 Year
  Sex: Female
  Weight: 7 kg

DRUGS (3)
  1. EUMOVATE [Concomitant]
     Active Substance: CLOBETASONE BUTYRATE
     Indication: RASH
     Dosage: 2 DF, QD (APPLY)
     Route: 065
     Dates: start: 20191231, end: 20200101
  2. HYDROMOL [Concomitant]
     Indication: PRODUCT USED FOR UNKNOWN INDICATION
     Dosage: APPLY TO SKIN OR USE AS A SOAP SUBSTITUTE
     Route: 065
  3. AMOXICILLIN. [Suspect]
     Active Substance: AMOXICILLIN
     Indication: PRODUCT USED FOR UNKNOWN INDICATION
     Dosage: UNK
     Route: 065
     Dates: start: 20200302

REACTIONS (1)
  - Swollen tongue [Recovered/Resolved]

NARRATIVE: CASE EVENT DATE: 20200302
